FAERS Safety Report 14585239 (Version 1)
Quarter: 2018Q1

REPORT INFORMATION
  Report Type: Spontaneous
  Country: DE (occurrence: DE)
  Receive Date: 20180301
  Receipt Date: 20180301
  Transmission Date: 20180509
  Serious: Yes (Hospitalization)
  Sender: FDA-Public Use
  Company Number: DE-AMGEN-DEUSP2017157118

PATIENT
  Age: 76 Year
  Sex: Female

DRUGS (1)
  1. ENBREL [Suspect]
     Active Substance: ETANERCEPT
     Indication: RHEUMATOID ARTHRITIS
     Dosage: 50 MG, 1X/WEEK
     Route: 065
     Dates: start: 2017

REACTIONS (4)
  - Condition aggravated [Unknown]
  - Rheumatoid arthritis [Unknown]
  - Drug ineffective [Not Recovered/Not Resolved]
  - Gouty tophus [Unknown]

NARRATIVE: CASE EVENT DATE: 2017
